FAERS Safety Report 23797185 (Version 3)
Quarter: 2024Q2

REPORT INFORMATION
  Report Type: Report from Study
  Country: US (occurrence: US)
  Receive Date: 20240430
  Receipt Date: 20240509
  Transmission Date: 20240716
  Serious: Yes (Hospitalization, Other)
  Sender: FDA-Public Use
  Company Number: US-UCBSA-2023046909

PATIENT
  Age: 31 Year
  Sex: Female
  Weight: 79.38 kg

DRUGS (20)
  1. CERTOLIZUMAB PEGOL [Suspect]
     Active Substance: CERTOLIZUMAB PEGOL
     Indication: Psoriatic arthropathy
     Dosage: 400 MILLIGRAM, EV 2 WEEKS(QOW)
     Route: 058
     Dates: start: 20230904
  2. CERTOLIZUMAB PEGOL [Suspect]
     Active Substance: CERTOLIZUMAB PEGOL
     Indication: Psoriasis
     Dosage: 200 MILLIGRAM, EV 2 WEEKS(QOW)
     Route: 058
     Dates: end: 20240329
  3. CAFFEINE [Concomitant]
     Active Substance: CAFFEINE
     Indication: Product used for unknown indication
     Dosage: 8 OZ SODA (5 TOTAL)
     Route: 048
     Dates: start: 20230927, end: 20231121
  4. CALCIUM [Concomitant]
     Active Substance: CALCIUM
     Indication: Nutritional supplementation
     Dosage: 1 PILL 1 DAY
     Route: 048
     Dates: start: 20231011, end: 20240408
  5. CALCIUM MAGNESIUM [CALCIUM;MAGNESIUM] [Concomitant]
     Indication: Nutritional supplementation
     Dosage: 2 PILLS  1 DAY
     Route: 048
     Dates: start: 20230628, end: 20231011
  6. INFLUENZA VIRUS VACCINE [Concomitant]
     Active Substance: INFLUENZA VIRUS VACCINE
     Indication: Product used for unknown indication
     Dosage: 1 SHOT 1 DAY
     Route: 030
     Dates: start: 20230922, end: 20230922
  7. IRON [Concomitant]
     Active Substance: IRON
     Indication: Product used for unknown indication
     Dosage: 45 MILLIGRAM, ONCE DAILY (QD)
     Route: 048
     Dates: start: 20231226, end: 20240408
  8. METOCLOPRAMIDE [Concomitant]
     Active Substance: METOCLOPRAMIDE
     Indication: Gastrointestinal disorder
     Dosage: 10 MILLIGRAM, 1.5 A DAY
     Route: 048
     Dates: start: 20230815, end: 20230928
  9. MODERNA COVID-19 VACCINE [Concomitant]
     Active Substance: ELASOMERAN
     Indication: Product used for unknown indication
     Dosage: 1 SHOT (DOSE 3+)
     Route: 030
     Dates: start: 20231202, end: 20231202
  10. OMEPRAZOLE [Concomitant]
     Active Substance: DONEPEZIL HYDROCHLORIDE\OMEPRAZOLE\OMEPRAZOLE MAGNESIUM
     Indication: Gastrointestinal disorder
     Dosage: 20 MILLIGRAM, ONCE DAILY (QD)
     Route: 048
     Dates: start: 20230628, end: 20240408
  11. PREDNISONE [Concomitant]
     Active Substance: PREDNISONE
     Indication: Psoriatic arthropathy
     Dosage: 5 MILLIGRAM, ONCE DAILY (QD)
     Route: 048
     Dates: start: 20230906, end: 20230928
  12. PREDNISONE [Concomitant]
     Active Substance: PREDNISONE
     Indication: Psoriasis
  13. MINERALS\VITAMINS [Concomitant]
     Active Substance: MINERALS\VITAMINS
     Indication: Product used for unknown indication
     Dosage: 1 PILL 1 DAY
     Route: 048
     Dates: start: 20230115, end: 20240408
  14. SIMETHICONE (DIMETHICONE) [Concomitant]
     Active Substance: DIMETHICONE
     Indication: Product used for unknown indication
     Dosage: 125 MILLIGRAM GAS, ONCE DAILY (QD)
     Route: 048
     Dates: start: 20240301, end: 20240408
  15. TETANUS TOXOID, REDUCED DIPHTHERIA TOXOID AND ACELLULAR PERTUSSIS VACC [Concomitant]
     Active Substance: TETANUS TOXOID, REDUCED DIPHTHERIA TOXOID AND ACELLULAR PERTUSSIS VACCINE ADSORBED, TDAP
     Indication: Product used for unknown indication
     Dosage: 1 SHOT PER DAY
     Route: 030
     Dates: start: 20230327, end: 20230327
  16. TETANUS TOXOID, REDUCED DIPHTHERIA TOXOID AND ACELLULAR PERTUSSIS VACC [Concomitant]
     Active Substance: TETANUS TOXOID, REDUCED DIPHTHERIA TOXOID AND ACELLULAR PERTUSSIS VACCINE ADSORBED, TDAP
     Dosage: 1 SHOT PER DAY
     Route: 030
     Dates: start: 20240118, end: 20240118
  17. TUMS [Concomitant]
     Active Substance: CALCIUM CARBONATE
     Indication: Dyspepsia
     Dosage: 2 PILL MONTHLY
     Route: 048
     Dates: start: 20231004, end: 20240408
  18. TUMS [Concomitant]
     Active Substance: CALCIUM CARBONATE
     Dosage: 3 PILL 1 DAY
     Route: 048
     Dates: start: 20230809, end: 20231004
  19. VITAMIN D NOS [Concomitant]
     Active Substance: VITAMIN D NOS
     Indication: Nutritional supplementation
     Dosage: 4000 INTERNATIONAL UNIT, WEEKLY (QW)
     Route: 048
     Dates: start: 20230628, end: 20231130
  20. VITAMIN D NOS [Concomitant]
     Active Substance: VITAMIN D NOS
     Dosage: 2000 INTERNATIONAL UNIT, 5X/WEEK
     Route: 048
     Dates: start: 20231201, end: 20240408

REACTIONS (10)
  - Systemic infection [Not Recovered/Not Resolved]
  - Sepsis [Unknown]
  - Caesarean section [Unknown]
  - Premature rupture of membranes [Unknown]
  - Labour induction [Unknown]
  - Injection site pain [Not Recovered/Not Resolved]
  - Postoperative wound infection [Not Recovered/Not Resolved]
  - Maternal exposure during pregnancy [Unknown]
  - Device difficult to use [Unknown]
  - Product quality issue [Unknown]

NARRATIVE: CASE EVENT DATE: 20230904
